FAERS Safety Report 9604382 (Version 1)
Quarter: 2013Q4

REPORT INFORMATION
  Report Type: Spontaneous
  Country: US (occurrence: US)
  Receive Date: 20131008
  Receipt Date: 20131008
  Transmission Date: 20140711
  Serious: No
  Sender: FDA-Public Use
  Company Number: US-GLAXOSMITHKLINE-A1028825A

PATIENT
  Age: 16 Year
  Sex: Male

DRUGS (9)
  1. POTIGA [Suspect]
     Indication: CONVULSION
     Dosage: 250MG PER DAY
     Route: 048
     Dates: start: 20130419
  2. FELBATOL [Concomitant]
  3. DEPAKOTE SPRINKLES [Concomitant]
  4. CLONAZEPAM [Concomitant]
  5. MELATONIN [Concomitant]
  6. BACLOFEN [Concomitant]
  7. POLYETHYLENE GLYCOL [Concomitant]
  8. OMEPRAZOLE [Concomitant]
  9. DIASTAT [Concomitant]

REACTIONS (2)
  - Drug administration error [Not Recovered/Not Resolved]
  - Sleep disorder [Unknown]
